FAERS Safety Report 16008004 (Version 6)
Quarter: 2019Q2

REPORT INFORMATION
  Report Type: Report from Study
  Country: DE (occurrence: DE)
  Receive Date: 20190226
  Receipt Date: 20190426
  Transmission Date: 20190711
  Serious: Yes (Death, Life-Threatening, Hospitalization)
  Sender: FDA-Public Use
  Company Number: DE-PFIZER INC-2019077864

PATIENT
  Age: 56 Year
  Sex: Female
  Weight: 42 kg

DRUGS (7)
  1. CARBOPLATIN. [Suspect]
     Active Substance: CARBOPLATIN
     Indication: NON-SMALL CELL LUNG CANCER
     Dosage: 448 MG (MOST RECENT DOSE 358 MG ON 01FEB2019)
     Dates: start: 20181228
  2. AVELUMAB [Suspect]
     Active Substance: AVELUMAB
     Dosage: 420 MG, WEEKLY
     Route: 042
  3. CARBOPLATIN. [Suspect]
     Active Substance: CARBOPLATIN
     Dosage: 358 MG, UNK
     Dates: end: 20190201
  4. ALIMTA [Suspect]
     Active Substance: PEMETREXED DISODIUM
     Indication: NON-SMALL CELL LUNG CANCER
     Dosage: 690 MG (MOST RECENT DOSE 560 MG ON 01FEB2019)
     Dates: start: 20181228
  5. ALIMTA [Suspect]
     Active Substance: PEMETREXED DISODIUM
     Dosage: 560 MG, UNK
     Dates: end: 20190201
  6. AVELUMAB [Suspect]
     Active Substance: AVELUMAB
     Indication: NON-SMALL CELL LUNG CANCER
     Dosage: 420 MG, WEEKLY
     Route: 042
     Dates: start: 20180813
  7. AVELUMAB [Suspect]
     Active Substance: AVELUMAB
     Dosage: 420 MG, WEEKLY
     Route: 042
     Dates: end: 20181119

REACTIONS (2)
  - Pneumonia [Fatal]
  - Pneumonitis [Not Recovered/Not Resolved]

NARRATIVE: CASE EVENT DATE: 20190207
